FAERS Safety Report 15671230 (Version 2)
Quarter: 2018Q4

REPORT INFORMATION
  Report Type: Spontaneous
  Country: JP (occurrence: JP)
  Receive Date: 20181129
  Receipt Date: 20181207
  Transmission Date: 20190205
  Serious: Yes (Other)
  Sender: FDA-Public Use
  Company Number: JP-SAKK-2016SA083777AA

PATIENT
  Age: 19 Year
  Sex: Male

DRUGS (1)
  1. ALLEGRA [Suspect]
     Active Substance: FEXOFENADINE HYDROCHLORIDE
     Indication: SEASONAL ALLERGY
     Dosage: 1 DF, QD, 60 MG
     Route: 048
     Dates: start: 201303, end: 201304

REACTIONS (1)
  - Alopecia universalis [Recovering/Resolving]

NARRATIVE: CASE EVENT DATE: 201304
